FAERS Safety Report 9469309 (Version 2)
Quarter: 2013Q3

REPORT INFORMATION
  Report Type: Spontaneous
  Country: US (occurrence: US)
  Receive Date: 20130821
  Receipt Date: 20130909
  Transmission Date: 20140515
  Serious: Yes (Hospitalization)
  Sender: FDA-Public Use
  Company Number: US-GILEAD-2013-0081783

PATIENT
  Sex: Male

DRUGS (3)
  1. LETAIRIS [Suspect]
     Indication: PULMONARY ARTERIAL HYPERTENSION
     Dosage: 5 MG, QD
     Dates: start: 20130307
  2. LETAIRIS [Suspect]
     Indication: LIVER TRANSPLANT
  3. DILTIAZEM [Suspect]

REACTIONS (2)
  - Hypotension [Unknown]
  - Syncope [Unknown]
